FAERS Safety Report 21363970 (Version 1)
Quarter: 2022Q3

REPORT INFORMATION
  Report Type: Spontaneous
  Country: US (occurrence: None)
  Receive Date: 20220921
  Receipt Date: 20220921
  Transmission Date: 20221027
  Serious: No
  Sender: FDA-Public Use
  Company Number: None

PATIENT
  Age: 27 Year
  Sex: Male
  Weight: 108 kg

DRUGS (2)
  1. METFORMIN [Suspect]
     Active Substance: METFORMIN HYDROCHLORIDE
     Indication: Glucose tolerance impaired
     Dates: start: 20220916, end: 20220917
  2. Losartin 50mg [Concomitant]

REACTIONS (2)
  - Abdominal pain upper [None]
  - Rectal haemorrhage [None]

NARRATIVE: CASE EVENT DATE: 20220916
